FAERS Safety Report 23712095 (Version 3)
Quarter: 2024Q2

REPORT INFORMATION
  Report Type: Spontaneous
  Country: GB (occurrence: GB)
  Receive Date: 20240405
  Receipt Date: 20240424
  Transmission Date: 20240715
  Serious: Yes (Hospitalization, Other)
  Sender: FDA-Public Use
  Company Number: GB-MYLANLABS-2024M1030239

PATIENT
  Age: 22 Year
  Sex: Male
  Weight: 112 kg

DRUGS (11)
  1. CLOZARIL [Suspect]
     Active Substance: CLOZAPINE
     Indication: Schizophrenia
     Dosage: 250 MILLIGRAM, BID
     Route: 048
     Dates: start: 20220412
  2. ARIPIPRAZOLE [Concomitant]
     Active Substance: ARIPIPRAZOLE
     Indication: Schizophrenia
     Dosage: 10 MILLIGRAM, QD
     Route: 048
  3. SCOPOLAMINE HYDROBROMIDE [Concomitant]
     Active Substance: SCOPOLAMINE HYDROBROMIDE
     Indication: Salivary hypersecretion
     Dosage: 300 MICROGRAM, BID
     Route: 048
  4. OMEPRAZOLE [Concomitant]
     Active Substance: OMEPRAZOLE
     Indication: Gastrooesophageal reflux disease
     Dosage: 20 MILLIGRAM, QD
     Route: 048
  5. DOCUSATE [Concomitant]
     Active Substance: DOCUSATE
     Indication: Constipation
     Dosage: 100 MILLIGRAM, TID
     Route: 048
  6. CHOLECALCIFEROL [Concomitant]
     Active Substance: CHOLECALCIFEROL
     Indication: Vitamin supplementation
     Dosage: 800 UNITS, QD
     Route: 048
  7. GLICLAZIDE [Concomitant]
     Active Substance: GLICLAZIDE
     Indication: Type 2 diabetes mellitus
     Dosage: 120 MILLIGRAM, QD (80 MG AT 8 AM AND 40 MG AT 12 NOON)
     Route: 048
  8. METFORMIN [Concomitant]
     Active Substance: METFORMIN HYDROCHLORIDE
     Indication: Type 2 diabetes mellitus
     Dosage: 1 GRAM, BID
     Route: 048
  9. PROPRANOLOL [Concomitant]
     Active Substance: PROPRANOLOL HYDROCHLORIDE
     Indication: Sinus tachycardia
     Dosage: 20 MILLIGRAM, BID
     Route: 048
  10. ACETAMINOPHEN [Concomitant]
     Active Substance: ACETAMINOPHEN
     Indication: Pain
     Dosage: 1 GRAM, PRN
     Route: 048
  11. ACETAMINOPHEN [Concomitant]
     Active Substance: ACETAMINOPHEN
     Indication: Pyrexia

REACTIONS (2)
  - Hospitalisation [Recovered/Resolved]
  - Haemolysis [Unknown]

NARRATIVE: CASE EVENT DATE: 20240327
